FAERS Safety Report 7015355-1 (Version None)
Quarter: 2010Q3

REPORT INFORMATION
  Report Type: 
  Country: None (occurrence: None)
  Receive Date: 20100927
  Receipt Date: 20100920
  Transmission Date: 20110219
  Serious: Yes (Death)
  Sender: FDA-Public Use
  Company Number: US-ELI_LILLY_AND_COMPANY-US201009005637

PATIENT

DRUGS (3)
  1. GEMZAR [Suspect]
     Indication: TRANSITIONAL CELL CARCINOMA
     Dosage: 1000 MG/M2, OTHER
  2. PACLITAXEL [Concomitant]
     Dosage: 175 MG/M2, OTHER
  3. OTHER ANTIEMETICS [Concomitant]

REACTIONS (1)
  - DEHYDRATION [None]
